FAERS Safety Report 5940988-0 (Version None)
Quarter: 2008Q4

REPORT INFORMATION
  Report Type: 
  Country: None (occurrence: None)
  Receive Date: 20081104
  Receipt Date: 20081027
  Transmission Date: 20090506
  Serious: Yes (Hospitalization, Other)
  Sender: FDA-Public Use
  Company Number: PHNU2007DE04256

PATIENT
  Sex: Female

DRUGS (8)
  1. LEPONEX [Suspect]
     Indication: SCHIZOPHRENIA
     Dosage: 200/200/100/175MG/DAY
     Route: 048
     Dates: start: 20071120, end: 20071220
  2. LEPONEX [Suspect]
     Indication: SCHIZOAFFECTIVE DISORDER
     Dosage: 475 MG/DAY
     Route: 048
     Dates: start: 20071220
  3. LEPONEX [Suspect]
     Dosage: 250 MG/DAY
     Route: 048
     Dates: end: 20080226
  4. LEPONEX [Suspect]
     Dosage: 300 MG/DAY
     Route: 048
     Dates: start: 20080227, end: 20080530
  5. LEPONEX [Suspect]
     Dosage: 250 MG/DAY
     Route: 048
     Dates: start: 20080530, end: 20080626
  6. LEPONEX [Suspect]
     Dosage: 300 MG/DAY
     Route: 048
     Dates: start: 20080626
  7. CIPRALEX [Concomitant]
  8. ZYPREXA [Concomitant]

REACTIONS (8)
  - CAESAREAN SECTION [None]
  - CONDITION AGGRAVATED [None]
  - DRUG EXPOSURE DURING PREGNANCY [None]
  - GESTATIONAL DIABETES [None]
  - NORMAL NEWBORN [None]
  - PREGNANCY [None]
  - PREMATURE LABOUR [None]
  - SCHIZOAFFECTIVE DISORDER [None]
